FAERS Safety Report 15678212 (Version 1)
Quarter: 2018Q4

REPORT INFORMATION
  Report Type: Report from Study
  Country: US (occurrence: US)
  Receive Date: 20181201
  Receipt Date: 20181201
  Transmission Date: 20190205
  Serious: Yes (Other)
  Sender: FDA-Public Use
  Company Number: US-AUROBINDO-AUR-APL-2018-057379

PATIENT
  Age: 17 Year
  Sex: Male

DRUGS (6)
  1. ATENOLOL. [Suspect]
     Active Substance: ATENOLOL
     Indication: TOXICITY TO VARIOUS AGENTS
     Dosage: UNK
     Route: 065
  2. ATENOLOL. [Suspect]
     Active Substance: ATENOLOL
     Indication: SUICIDE ATTEMPT
  3. COLCHICINE. [Suspect]
     Active Substance: COLCHICINE
     Indication: SUICIDE ATTEMPT
  4. AMLODIPINE [Suspect]
     Active Substance: AMLODIPINE BESYLATE
     Indication: TOXICITY TO VARIOUS AGENTS
     Dosage: UNK
     Route: 065
  5. COLCHICINE. [Suspect]
     Active Substance: COLCHICINE
     Indication: TOXICITY TO VARIOUS AGENTS
     Dosage: UNK
     Route: 065
  6. AMLODIPINE [Suspect]
     Active Substance: AMLODIPINE BESYLATE
     Indication: SUICIDE ATTEMPT

REACTIONS (6)
  - Renal failure [Unknown]
  - Pulmonary oedema [Unknown]
  - Toxicity to various agents [Unknown]
  - Hypotension [Unknown]
  - Suicide attempt [Unknown]
  - Cardiac arrest [Unknown]

NARRATIVE: CASE EVENT DATE: 2010
